FAERS Safety Report 16997960 (Version 1)
Quarter: 2019Q4

REPORT INFORMATION
  Report Type: Spontaneous
  Country: US (occurrence: US)
  Receive Date: 20191106
  Receipt Date: 20191106
  Transmission Date: 20200122
  Serious: Yes (Life-Threatening, Hospitalization)
  Sender: FDA-Public Use
  Company Number: US-TEVA-2019-US-1132090

PATIENT
  Age: 87 Year
  Sex: Female

DRUGS (3)
  1. LEVOTHYROXINE. [Suspect]
     Active Substance: LEVOTHYROXINE
     Indication: HYPOTHYROIDISM
     Route: 065
  2. HYDROXYCARBAMIDE [Suspect]
     Active Substance: HYDROXYUREA
     Indication: THROMBOCYTOSIS
     Route: 065
  3. AMIODARONE [Suspect]
     Active Substance: AMIODARONE
     Indication: CARDIAC FAILURE
     Route: 065

REACTIONS (6)
  - Cardiac failure acute [Recovered/Resolved]
  - Liver disorder [Recovered/Resolved]
  - Anaemia macrocytic [Recovering/Resolving]
  - Pulmonary toxicity [Not Recovered/Not Resolved]
  - Thrombocytopenia [Recovering/Resolving]
  - Hepatotoxicity [Recovered/Resolved]
